FAERS Safety Report 6820744-1 (Version None)
Quarter: 2010Q3

REPORT INFORMATION
  Report Type: 
  Country: None (occurrence: None)
  Receive Date: 20100707
  Receipt Date: 20070531
  Transmission Date: 20110219
  Serious: No
  Sender: FDA-Public Use
  Company Number: US-PFIZER INC-2007045239

PATIENT
  Age: 36 Year
  Sex: Female

DRUGS (1)
  1. ZOLOFT [Suspect]
     Indication: POSTPARTUM DEPRESSION

REACTIONS (5)
  - AGGRESSION [None]
  - APATHY [None]
  - CRYING [None]
  - DEPRESSION [None]
  - INTENTIONAL DRUG MISUSE [None]
